FAERS Safety Report 9914550 (Version 1)
Quarter: 2014Q1

REPORT INFORMATION
  Report Type: Spontaneous
  Country: FR (occurrence: FR)
  Receive Date: 20140220
  Receipt Date: 20140220
  Transmission Date: 20141002
  Serious: Yes (Hospitalization, Other)
  Sender: FDA-Public Use
  Company Number: PHHY2014FR018788

PATIENT
  Age: 18 Year
  Sex: Female

DRUGS (4)
  1. CICLOSPORIN [Suspect]
     Indication: PROPHYLAXIS AGAINST GRAFT VERSUS HOST DISEASE
  2. AMPHOTERICIN B [Suspect]
     Indication: ANTIFUNGAL TREATMENT
     Dosage: 5 MG/KG, PER DAY
  3. AMPHOTERICIN B [Suspect]
     Dosage: 2 UG/ML, UNK
     Route: 042
  4. MYCOPHENOLATE MOFETIL [Concomitant]
     Indication: PROPHYLAXIS AGAINST GRAFT VERSUS HOST DISEASE

REACTIONS (14)
  - Hypokalaemia [Recovered/Resolved]
  - Meningitis aseptic [Unknown]
  - Convulsion [Unknown]
  - Renal failure acute [Recovered/Resolved]
  - Toxoplasmosis [Recovered/Resolved]
  - Blood stem cell transplant failure [Unknown]
  - Bone marrow failure [Unknown]
  - Neutropenia [Unknown]
  - Fusarium infection [Recovered/Resolved]
  - Necrosis [Recovering/Resolving]
  - Pyrexia [Recovered/Resolved]
  - Nodule [Recovering/Resolving]
  - Erythema [Unknown]
  - Rash pustular [Unknown]
